FAERS Safety Report 9521551 (Version 1)
Quarter: 2013Q1

REPORT INFORMATION
  Report Type: Spontaneous
  Country: US (occurrence: None)
  Receive Date: 20130305
  Receipt Date: 20130305
  Transmission Date: 20140127
  Serious: Yes (Other)
  Sender: FDA-Public Use
  Company Number: 163-21880-12080180

PATIENT
  Age: 60 Year
  Sex: Male

DRUGS (6)
  1. OMEGA-3 ACIDS [Concomitant]
  2. MULTIVITAMINS (MULTIVITAMINS) (UNKNOWN) [Concomitant]
  3. REVLIMID (LENALIDOMIDE) (CAPSULES) [Suspect]
     Indication: PLASMA CELL MYELOMA
     Dosage: 10 MG, 21 IN 21 D, PO
     Route: 048
     Dates: start: 201009
  4. CARDIZEM (DILTIAZEM HYDROCHLORIDE) (UNKNOWN) [Concomitant]
  5. LOSARTAN POTASSIUM (LOSARTAN POTASSIUM) (UNKNOWN) [Concomitant]
  6. ASPIRIN (ACETYLSALICYLIC ACID) (UNKNOWN) (ACETYLSALICYLIC ACID) [Concomitant]

REACTIONS (3)
  - Fatigue [None]
  - Muscle spasms [None]
  - Neuropathy peripheral [None]
